FAERS Safety Report 7803859-0 (Version None)
Quarter: 2011Q4

REPORT INFORMATION
  Report Type: 
  Country: None (occurrence: None)
  Receive Date: 20111010
  Receipt Date: 20111004
  Transmission Date: 20120403
  Serious: Yes (Hospitalization, Other)
  Sender: FDA-Public Use
  Company Number: US-PFIZER INC-2011140496

PATIENT
  Sex: Male
  Weight: 80.726 kg

DRUGS (7)
  1. VIAGRA [Concomitant]
     Dosage: 100 MG
  2. CHANTIX [Suspect]
     Indication: SMOKING CESSATION THERAPY
     Dosage: 0.5 MG, UNK
     Route: 048
     Dates: start: 20110607, end: 20110612
  3. ATIVAN [Suspect]
     Indication: AMNESIA
     Dosage: 2 MG, 4X/DAY
     Dates: start: 20110101
  4. CHANTIX [Suspect]
     Dosage: UNK
     Route: 048
     Dates: start: 20110607
  5. ATIVAN [Suspect]
     Indication: PARANOIA
  6. MOBIC [Concomitant]
     Dosage: 15 MG, DAILY
  7. BENICAR [Concomitant]
     Dosage: 40/25 1X/DAY

REACTIONS (9)
  - DYSPNOEA [None]
  - AMNESIA [None]
  - CONFUSIONAL STATE [None]
  - PARANOIA [None]
  - MOOD ALTERED [None]
  - MENTAL STATUS CHANGES [None]
  - FEELING ABNORMAL [None]
  - NIGHTMARE [None]
  - ADVERSE DRUG REACTION [None]
